FAERS Safety Report 21242339 (Version 1)
Quarter: 2022Q3

REPORT INFORMATION
  Report Type: Spontaneous
  Country: DE (occurrence: DE)
  Receive Date: 20220823
  Receipt Date: 20220823
  Transmission Date: 20221026
  Serious: Yes (Life-Threatening, Other)
  Sender: FDA-Public Use
  Company Number: DE-ASTELLAS-2022US029875

PATIENT
  Age: 36 Year
  Sex: Female

DRUGS (1)
  1. MIRABEGRON [Suspect]
     Active Substance: MIRABEGRON
     Indication: Hypertonic bladder
     Dosage: 50 MG, ONCE DAILY FOR 6 WEEKS (IN THE MORNING)
     Route: 065

REACTIONS (4)
  - Dyspnoea [Unknown]
  - Rash [Unknown]
  - Eye disorder [Unknown]
  - Swelling face [Unknown]
